FAERS Safety Report 7170793-1 (Version None)
Quarter: 2010Q4

REPORT INFORMATION
  Report Type: 
  Country: None (occurrence: None)
  Receive Date: 20101214
  Receipt Date: 20101214
  Transmission Date: 20110411
  Serious: Yes (Hospitalization)
  Sender: FDA-Public Use
  Company Number: None

PATIENT
  Age: 71 Year
  Sex: Male
  Weight: 125 kg

DRUGS (2)
  1. CIPROFLOXACIN [Suspect]
     Indication: SEPSIS
     Dosage: 500 MG BID PO
     Route: 048
     Dates: start: 20100808, end: 20100810
  2. PIPERACILLIN AND TAZOBACTAM [Suspect]
     Indication: SEPSIS
     Dosage: 2.25 MG QID IV
     Route: 042
     Dates: start: 20100819, end: 20100821

REACTIONS (2)
  - CLOSTRIDIAL INFECTION [None]
  - DIARRHOEA [None]
